FAERS Safety Report 9265405 (Version 1)
Quarter: 2013Q2

REPORT INFORMATION
  Report Type: Spontaneous
  Country: FR (occurrence: FR)
  Receive Date: 20130501
  Receipt Date: 20130501
  Transmission Date: 20140414
  Serious: Yes (Hospitalization)
  Sender: FDA-Public Use
  Company Number: FR-ASTRAZENECA-2013SE29366

PATIENT
  Age: 30556 Day
  Sex: Male

DRUGS (20)
  1. PULMICORT [Suspect]
     Route: 055
     Dates: start: 20130217, end: 20130219
  2. PULMICORT [Suspect]
     Route: 055
     Dates: start: 20130207
  3. TAZOCILLINE [Suspect]
     Indication: BRONCHOPNEUMONIA
     Dosage: 3 DF DAILY
     Route: 042
     Dates: start: 20130212, end: 20130218
  4. CELOCURINE [Suspect]
     Indication: ANAESTHESIA
     Route: 042
     Dates: start: 20130209, end: 20130209
  5. VANCOMYCINE [Suspect]
     Indication: INFECTION
     Route: 042
     Dates: start: 20130202, end: 20130203
  6. TAVANIC [Suspect]
     Indication: BRONCHOPNEUMONIA
     Route: 042
     Dates: start: 20130204, end: 20130219
  7. ROCEPHINE [Suspect]
     Indication: BRONCHOPNEUMONIA
     Route: 042
     Dates: start: 20130206, end: 20130212
  8. MONO TILDIEM [Suspect]
     Route: 048
     Dates: start: 20130127, end: 20130210
  9. DIGOXINE [Suspect]
     Route: 042
     Dates: start: 20130209, end: 20130211
  10. FUNGIZONE [Suspect]
     Indication: FUNGAL INFECTION
     Route: 002
     Dates: start: 20130206, end: 20130210
  11. FUNGIZONE [Suspect]
     Indication: FUNGAL INFECTION
     Route: 002
     Dates: start: 20130212, end: 20130212
  12. AUGMENTIN [Suspect]
     Indication: INFECTION
     Route: 042
     Dates: start: 20130128, end: 20130206
  13. RISORDAN [Suspect]
     Route: 042
     Dates: start: 20130207
  14. HYPNOVEL [Suspect]
     Route: 042
     Dates: start: 20130211, end: 20130414
  15. HYPNOMIDATE [Suspect]
     Indication: ANAESTHESIA
     Route: 042
     Dates: start: 20130209, end: 20130209
  16. TRANXENE [Suspect]
     Indication: ANXIETY
     Route: 048
     Dates: start: 20130209
  17. LASILIX [Concomitant]
     Indication: OEDEMA
     Route: 048
     Dates: start: 20130127, end: 20130210
  18. DIFFU K [Concomitant]
     Indication: HYPOKALAEMIA
     Route: 048
     Dates: start: 20130202, end: 20130204
  19. NORADRENALINE [Concomitant]
     Route: 042
     Dates: start: 20130211, end: 20130214
  20. FENTANYL [Concomitant]
     Indication: PAIN
     Route: 042
     Dates: start: 20130209, end: 20130214

REACTIONS (1)
  - Thrombocytopenia [Recovered/Resolved]
